FAERS Safety Report 9215024 (Version 2)
Quarter: 2014Q1

REPORT INFORMATION
  Report Type: Spontaneous
  Country: US (occurrence: US)
  Receive Date: 20130405
  Receipt Date: 20140109
  Transmission Date: 20141002
  Serious: Yes (Other)
  Sender: FDA-Public Use
  Company Number: US-BAYER-2013-041394

PATIENT
  Age: 30 Year
  Sex: Female
  Weight: 97 kg

DRUGS (2)
  1. YAZ [Suspect]
     Indication: ACNE
  2. AZMACORT [Concomitant]
     Dosage: UNK
     Dates: start: 20080819

REACTIONS (4)
  - Cholecystitis [None]
  - Pain [None]
  - Injury [None]
  - Pain [None]
